FAERS Safety Report 11688880 (Version 1)
Quarter: 2015Q4

REPORT INFORMATION
  Report Type: Spontaneous
  Country: US (occurrence: US)
  Receive Date: 20151102
  Receipt Date: 20151102
  Transmission Date: 20160304
  Serious: No
  Sender: FDA-Public Use
  Company Number: US-ASTRAZENECA-2015SF02796

PATIENT
  Age: 77 Year
  Sex: Female

DRUGS (2)
  1. DIAZEPAM. [Interacting]
     Active Substance: DIAZEPAM
     Route: 065
  2. PRILOSEC OTC [Suspect]
     Active Substance: OMEPRAZOLE MAGNESIUM
     Route: 048

REACTIONS (2)
  - Dyspepsia [Recovered/Resolved]
  - Labelled drug-drug interaction medication error [Unknown]
